FAERS Safety Report 6907749-7 (Version None)
Quarter: 2010Q3

REPORT INFORMATION
  Report Type: 
  Country: None (occurrence: None)
  Receive Date: 20100712
  Receipt Date: 20091211
  Transmission Date: 20110219
  Serious: No
  Sender: FDA-Public Use
  Company Number: US-001142

PATIENT
  Sex: Male
  Weight: 175 kg

DRUGS (5)
  1. KUVAN [Suspect]
     Indication: PHENYLKETONURIA
     Dosage: (20 MG/KG QD ORAL), (10 MG/KG QD ORAL)
     Route: 048
     Dates: start: 20091101, end: 20091203
  2. KUVAN [Suspect]
     Indication: PHENYLKETONURIA
     Dosage: (20 MG/KG QD ORAL), (10 MG/KG QD ORAL)
     Route: 048
     Dates: start: 20091204
  3. LITHIUM [Concomitant]
  4. CYMBALTA [Concomitant]
  5. ZIPRASIDONE HCL [Concomitant]

REACTIONS (1)
  - TREMOR [None]
